FAERS Safety Report 10524235 (Version 1)
Quarter: 2014Q4

REPORT INFORMATION
  Report Type: Spontaneous
  Country: US (occurrence: None)
  Receive Date: 20141015
  Receipt Date: 20141015
  Transmission Date: 20150528
  Serious: Yes (Hospitalization)
  Sender: FDA-Public Use
  Company Number: None

PATIENT
  Age: 61 Year
  Sex: Female

DRUGS (20)
  1. SODIUM CHLORIDE 0.9% [Concomitant]
     Active Substance: SODIUM CHLORIDE
  2. SORBITOL. [Concomitant]
     Active Substance: SORBITOL
  3. LAMIVUDINE. [Concomitant]
     Active Substance: LAMIVUDINE
  4. ATORVASTATIN [Concomitant]
     Active Substance: ATORVASTATIN
  5. CINACALCET [Concomitant]
     Active Substance: CINACALCET
  6. ONDANSETRON [Concomitant]
     Active Substance: ONDANSETRON
  7. ACETAMINOPHEN. [Concomitant]
     Active Substance: ACETAMINOPHEN
  8. PREDNISOLONE. [Concomitant]
     Active Substance: PREDNISOLONE
  9. METRONIDAZOLE. [Concomitant]
     Active Substance: METRONIDAZOLE
  10. RALTEGRAVIR [Concomitant]
     Active Substance: RALTEGRAVIR
  11. REVLIMID [Suspect]
     Active Substance: LENALIDOMIDE
     Indication: PLASMA CELL MYELOMA
     Dosage: 5MG DAILY X21D/28D ORALLY
     Route: 048
     Dates: start: 20120322, end: 20141012
  12. EPOETIN [Concomitant]
     Active Substance: ERYTHROPOIETIN
  13. METOCLOPRAMIDE. [Concomitant]
     Active Substance: METOCLOPRAMIDE
  14. TRAZODONE [Concomitant]
     Active Substance: TRAZODONE HYDROCHLORIDE
  15. HYDROCODONE -ACETAMINOPHEN [Concomitant]
  16. ABACAVIR [Concomitant]
     Active Substance: ABACAVIR
  17. ASPIRIN. [Concomitant]
     Active Substance: ASPIRIN
  18. ATOVAQUONE. [Concomitant]
     Active Substance: ATOVAQUONE
  19. NEPHRO-VITE [Concomitant]
  20. CYANOCOBALAMIN. [Concomitant]
     Active Substance: CYANOCOBALAMIN

REACTIONS (8)
  - Asthenia [None]
  - Dizziness [None]
  - Tachycardia [None]
  - Pain [None]
  - Diarrhoea [None]
  - Hypophagia [None]
  - Pyrexia [None]
  - Decreased appetite [None]

NARRATIVE: CASE EVENT DATE: 20140929
